FAERS Safety Report 14874916 (Version 1)
Quarter: 2018Q2

REPORT INFORMATION
  Report Type: Spontaneous
  Country: AR (occurrence: AR)
  Receive Date: 20180510
  Receipt Date: 20180510
  Transmission Date: 20180711
  Serious: Yes (Other)
  Sender: FDA-Public Use
  Company Number: AR-BAYER-2018-085850

PATIENT
  Age: 71 Year
  Sex: Male
  Weight: 71.75 kg

DRUGS (10)
  1. CALCIUM CARBONATE W/CALCIUM LACTATE GLUCONATE [Concomitant]
     Active Substance: CALCIUM CARBONATE\CALCIUM LACTATE GLUCONATE
     Dosage: 1 DF, QD
  2. LEVOTHYROXINE. [Concomitant]
     Active Substance: LEVOTHYROXINE
     Dosage: 100 ?G, QD
  3. CALCIUM CITRATE W/VITAMIN D NOS [Concomitant]
     Dosage: 2 DF, QD
  4. VALSARTAN. [Concomitant]
     Active Substance: VALSARTAN
     Dosage: 80 MG, BID
  5. HYDROCHLOROTHIAZIDE. [Concomitant]
     Active Substance: HYDROCHLOROTHIAZIDE
     Dosage: 12.5 MG, BID
  6. PAMIDRONATE [Concomitant]
     Active Substance: PAMIDRONATE DISODIUM
     Dosage: 90 MG, OM
     Route: 042
     Dates: start: 20170831
  7. CALCITRIOL. [Concomitant]
     Active Substance: CALCITRIOL
     Dosage: 2 DF, QD
  8. CLONAZEPAM. [Concomitant]
     Active Substance: CLONAZEPAM
     Dosage: 2 MG, QD
  9. PANTOPRAZOLE [Concomitant]
     Active Substance: PANTOPRAZOLE
     Dosage: 20 MG, QD
  10. NEXAVAR [Suspect]
     Active Substance: SORAFENIB
     Indication: MEDULLARY THYROID CANCER
     Dosage: 800 MG, QD
     Dates: start: 20180201

REACTIONS (5)
  - Mucosal inflammation [Unknown]
  - Off label use [None]
  - Product use in unapproved indication [Not Recovered/Not Resolved]
  - Hypertension [Unknown]
  - Metastases to lymph nodes [Unknown]

NARRATIVE: CASE EVENT DATE: 2018
